FAERS Safety Report 21984898 (Version 2)
Quarter: 2023Q1

REPORT INFORMATION
  Report Type: Report from Study
  Country: CA (occurrence: CA)
  Receive Date: 20230213
  Receipt Date: 20230220
  Transmission Date: 20230417
  Serious: Yes (Hospitalization, Other)
  Sender: FDA-Public Use
  Company Number: CA-MYLANLABS-2023M1014822

PATIENT
  Sex: Female

DRUGS (1)
  1. HULIO [Suspect]
     Active Substance: ADALIMUMAB-FKJP
     Indication: Rheumatoid arthritis
     Dosage: 40 MILLIGRAM, Q2W (EVERY OTHER WEEK)
     Route: 065
     Dates: start: 202207

REACTIONS (3)
  - Pneumonia [Unknown]
  - Osteomyelitis [Unknown]
  - Therapeutic product effect incomplete [Unknown]
